FAERS Safety Report 9127378 (Version 1)
Quarter: 2013Q1

REPORT INFORMATION
  Report Type: Spontaneous
  Country: US (occurrence: US)
  Receive Date: 20130228
  Receipt Date: 20130228
  Transmission Date: 20140127
  Serious: No
  Sender: FDA-Public Use
  Company Number: US-B.I. PHARMACEUTICALS,INC./RIDGEFIELD-2013-BI-04843BP

PATIENT
  Sex: Female

DRUGS (12)
  1. SPIRIVA [Suspect]
     Indication: CHRONIC OBSTRUCTIVE PULMONARY DISEASE
     Dosage: 18 MCG
     Route: 055
     Dates: start: 2012
  2. REVLIMID [Concomitant]
     Route: 048
  3. GABAPENTIN [Concomitant]
     Indication: NEUROPATHY PERIPHERAL
     Route: 048
  4. AREOA [Concomitant]
  5. SYMBICORT [Concomitant]
     Route: 055
  6. ACYCLOVIR [Concomitant]
     Route: 048
  7. ENOXAPARIN [Concomitant]
  8. POTASSIUM CHLORIDE [Concomitant]
     Route: 048
  9. PREVALITE [Concomitant]
  10. BRIMONIDINE [Concomitant]
     Indication: GLAUCOMA
  11. LATANOPROST [Concomitant]
     Indication: GLAUCOMA
  12. VELCADE [Concomitant]
     Indication: PLASMA CELL MYELOMA
     Route: 030

REACTIONS (2)
  - Diarrhoea [Not Recovered/Not Resolved]
  - Gait disturbance [Not Recovered/Not Resolved]
